FAERS Safety Report 7540925-1 (Version None)
Quarter: 2011Q2

REPORT INFORMATION
  Report Type: 
  Country: None (occurrence: None)
  Receive Date: 20110610
  Receipt Date: 20110606
  Transmission Date: 20111010
  Serious: Yes (Hospitalization, Other)
  Sender: FDA-Public Use
  Company Number: NL-PFIZER INC-2011122075

PATIENT
  Age: 64 Year
  Sex: Male

DRUGS (2)
  1. VARENICLINE TARTRATE [Suspect]
     Indication: SMOKING CESSATION THERAPY
     Dosage: 0.5 MG, 1X/DAY
  2. VARENICLINE TARTRATE [Suspect]
     Dosage: 1 MG/DAY

REACTIONS (3)
  - MANIA [None]
  - DISORIENTATION [None]
  - MEMORY IMPAIRMENT [None]
